FAERS Safety Report 8889750 (Version 6)
Quarter: 2013Q1

REPORT INFORMATION
  Report Type: Spontaneous
  Country: ES (occurrence: ES)
  Receive Date: 20121107
  Receipt Date: 20130219
  Transmission Date: 20140127
  Serious: Yes (Hospitalization, Other)
  Sender: FDA-Public Use
  Company Number: ES-JNJFOC-20121017190

PATIENT
  Age: 47 None
  Sex: Female
  Weight: 46 kg

DRUGS (4)
  1. STELARA [Suspect]
     Indication: DERMATITIS ATOPIC
     Dosage: LAST INJECTION BEFORE THE PATIENT EXPERIENCED ANAPHYLACTIC SHOCK WAS ON 13-SE-2012
     Route: 058
     Dates: start: 20120816, end: 201212
  2. CONTRAST MEDIUM [Suspect]
     Indication: COMPUTERISED TOMOGRAM
     Route: 065
     Dates: start: 20121016, end: 20121016
  3. DACORTIN [Concomitant]
     Indication: DERMATITIS ATOPIC
     Route: 048
     Dates: start: 20100622, end: 20121028
  4. CEMIDON [Concomitant]
     Indication: LATENT TUBERCULOSIS
     Route: 065
     Dates: start: 20120827

REACTIONS (6)
  - Invasive ductal breast carcinoma [Unknown]
  - Lymphadenopathy [Recovered/Resolved]
  - Weight decreased [Recovering/Resolving]
  - Condition aggravated [Unknown]
  - Malaise [Recovered/Resolved]
  - Drug ineffective for unapproved indication [Not Recovered/Not Resolved]
